FAERS Safety Report 16255711 (Version 1)
Quarter: 2019Q2

REPORT INFORMATION
  Report Type: Spontaneous
  Country: US (occurrence: US)
  Receive Date: 20190429
  Receipt Date: 20190429
  Transmission Date: 20190711
  Serious: Yes (Hospitalization)
  Sender: FDA-Public Use
  Company Number: None

PATIENT
  Age: 23 Year
  Sex: Female

DRUGS (17)
  1. ARTEMISA [Concomitant]
     Dates: start: 20190304
  2. GAMMAGARD [Suspect]
     Active Substance: HUMAN IMMUNOGLOBULIN G
     Indication: POLYNEUROPATHY
     Dosage: ?          OTHER FREQUENCY:ONCE DAILY FOR 3 D;?
     Route: 058
     Dates: start: 20190319
  3. VITAMIN B-1 [Concomitant]
     Active Substance: THIAMINE HYDROCHLORIDE
     Dates: start: 20190304
  4. CEFDINIR. [Concomitant]
     Active Substance: CEFDINIR
     Dates: start: 20190304
  5. HYDROCORTISO [Concomitant]
     Dates: start: 20190304
  6. MINOCYCLINE [Concomitant]
     Active Substance: MINOCYCLINE\MINOCYCLINE HYDROCHLORIDE
     Dates: start: 20190304
  7. PHOSPHATIDYL [Concomitant]
     Dates: start: 20190304
  8. FISH OIL [Concomitant]
     Active Substance: FISH OIL
     Dates: start: 20190304
  9. VITAMIN D NOS [Concomitant]
     Active Substance: VITAMIN D NOS
     Dates: start: 20190304
  10. FLUDROCORT [Concomitant]
     Dates: start: 20190304
  11. GABAPENTIN. [Concomitant]
     Active Substance: GABAPENTIN
     Dates: start: 20190304
  12. LIPOIC [Concomitant]
     Dates: start: 20190304
  13. METRONIDAZOL [Concomitant]
     Active Substance: METRONIDAZOLE
     Dates: start: 20190304
  14. FLUCONAZOLE. [Concomitant]
     Active Substance: FLUCONAZOLE
     Dates: start: 20190304
  15. ATOVAQUONE. [Concomitant]
     Active Substance: ATOVAQUONE
     Dates: start: 20190304
  16. GAMMAGARD [Suspect]
     Active Substance: HUMAN IMMUNOGLOBULIN G
     Indication: POLYNEUROPATHY
     Dosage: ?          OTHER FREQUENCY:ONCE DAILY FOR 3 D;?
     Route: 058
     Dates: start: 20190319
  17. N-ACETYL-L [Concomitant]
     Dates: start: 20190304

REACTIONS (1)
  - Headache [None]

NARRATIVE: CASE EVENT DATE: 20190328
